FAERS Safety Report 17113149 (Version 7)
Quarter: 2020Q2

REPORT INFORMATION
  Report Type: Spontaneous
  Country: US (occurrence: US)
  Receive Date: 20191204
  Receipt Date: 20200630
  Transmission Date: 20200713
  Serious: Yes (Hospitalization, Other)
  Sender: FDA-Public Use
  Company Number: US-MALLINCKRODT-T201907754

PATIENT
  Sex: Male
  Weight: 103 kg

DRUGS (4)
  1. H.P. ACTHAR [Suspect]
     Active Substance: CORTICOTROPIN
     Dosage: (80 UNITS) 1 MILLILITER, TWICE A WEEK
     Route: 058
     Dates: start: 20150615
  2. UPADACITINIB [Concomitant]
     Active Substance: UPADACITINIB
     Indication: PRODUCT USED FOR UNKNOWN INDICATION
     Dosage: UNK
     Route: 065
     Dates: start: 202003
  3. H.P. ACTHAR [Suspect]
     Active Substance: CORTICOTROPIN
     Dosage: (80 UNITS) 1 MILLILITER, TWICE A WEEK
     Route: 058
     Dates: start: 201801
  4. H.P. ACTHAR [Suspect]
     Active Substance: CORTICOTROPIN
     Indication: RHEUMATOID ARTHRITIS
     Dosage: 80 UNITS, TWICE A WEEK
     Route: 065
     Dates: start: 20150605, end: 2015

REACTIONS (8)
  - Pneumonia [Recovering/Resolving]
  - Hypoacusis [Unknown]
  - Chronic obstructive pulmonary disease [Not Recovered/Not Resolved]
  - Pulmonary mass [Not Recovered/Not Resolved]
  - Pain [Not Recovered/Not Resolved]
  - Renal impairment [Recovering/Resolving]
  - Blood test abnormal [Unknown]
  - Gait inability [Not Recovered/Not Resolved]

NARRATIVE: CASE EVENT DATE: 2020
